FAERS Safety Report 13423528 (Version 2)
Quarter: 2017Q2

REPORT INFORMATION
  Report Type: Spontaneous
  Country: US (occurrence: US)
  Receive Date: 20170410
  Receipt Date: 20170605
  Transmission Date: 20170830
  Serious: Yes (Other)
  Sender: FDA-Public Use
  Company Number: US-PFIZER INC-2017151690

PATIENT
  Sex: Female

DRUGS (1)
  1. LYRICA [Suspect]
     Active Substance: PREGABALIN
     Dosage: UNK

REACTIONS (8)
  - Neuropathy peripheral [Unknown]
  - Blood glucose fluctuation [Unknown]
  - Nerve injury [Unknown]
  - Gait disturbance [Unknown]
  - Diabetes mellitus [Unknown]
  - Pain in extremity [Unknown]
  - Fibromyalgia [Unknown]
  - Meniscus injury [Unknown]
